FAERS Safety Report 19111228 (Version 2)
Quarter: 2021Q2

REPORT INFORMATION
  Report Type: Spontaneous
  Country: US (occurrence: US)
  Receive Date: 20210408
  Receipt Date: 20210428
  Transmission Date: 20210717
  Serious: Yes (Other)
  Sender: FDA-Public Use
  Company Number: US-GW PHARMA-202103USGW01383

PATIENT

DRUGS (21)
  1. EPIDIOLEX [Suspect]
     Active Substance: CANNABIDIOL
     Dosage: 500 MILLIGRAM, BID
     Route: 048
     Dates: start: 202001
  2. EPIDIOLEX [Suspect]
     Active Substance: CANNABIDIOL
     Dosage: 370 MILLIGRAM, BID
     Route: 048
     Dates: end: 202012
  3. FLUOXETINE [Concomitant]
     Active Substance: FLUOXETINE HYDROCHLORIDE
     Dosage: DOSE INCREASED
     Route: 065
     Dates: start: 2018
  4. EPIDIOLEX [Suspect]
     Active Substance: CANNABIDIOL
     Dosage: 550 MILLIGRAM, BID
     Route: 048
  5. ATIVAN [Concomitant]
     Active Substance: LORAZEPAM
     Dosage: 1 MILLIGRAM, QD
     Route: 065
  6. RISPERIDONE. [Concomitant]
     Active Substance: RISPERIDONE
     Indication: EPILEPSY
     Dosage: UNKNOWN DOSE
     Route: 065
     Dates: start: 2018, end: 2018
  7. EPIDIOLEX [Suspect]
     Active Substance: CANNABIDIOL
     Dosage: 450 MILLIGRAM, BID
     Route: 048
     Dates: start: 202102, end: 202102
  8. TRAZODONE [Suspect]
     Active Substance: TRAZODONE HYDROCHLORIDE
     Indication: EPILEPSY
     Dosage: UNKNOWN DOSE
     Route: 065
     Dates: start: 2016, end: 2020
  9. NALTREXONE [Concomitant]
     Active Substance: NALTREXONE
     Indication: EPILEPSY
     Dosage: UNK
     Route: 065
  10. DIASTAT [DIAZEPAM] [Concomitant]
     Indication: EPILEPSY
     Dosage: 10 MILLIGRAM, PRN
     Route: 065
  11. EPIDIOLEX [Suspect]
     Active Substance: CANNABIDIOL
     Indication: LENNOX-GASTAUT SYNDROME
     Dosage: 260 MILLIGRAM, BID
     Route: 048
     Dates: start: 20190214, end: 201902
  12. TRAZODONE [Suspect]
     Active Substance: TRAZODONE HYDROCHLORIDE
     Dosage: GOING OFF BY 50 MG
     Route: 065
     Dates: start: 202012, end: 20201224
  13. LITHIUM. [Concomitant]
     Active Substance: LITHIUM
     Indication: EPILEPSY
     Dosage: UNK
     Route: 065
  14. EPIDIOLEX [Suspect]
     Active Substance: CANNABIDIOL
     Dosage: 18.5 MG/KG/DAY, 500 MILLIGRAM, BID
     Route: 048
     Dates: start: 202102
  15. FLUOXETINE [Concomitant]
     Active Substance: FLUOXETINE HYDROCHLORIDE
     Indication: EPILEPSY
     Dosage: UNKNOWN DOSE
     Route: 065
     Dates: start: 201805, end: 2018
  16. DIAZEPAM. [Concomitant]
     Active Substance: DIAZEPAM
     Indication: EPILEPSY
     Dosage: 2 MILLIGRAM, TID
     Route: 065
  17. LEVETIRACETAM. [Concomitant]
     Active Substance: LEVETIRACETAM
     Indication: SEIZURE
     Dosage: UNK
     Route: 065
     Dates: start: 20190202, end: 20190228
  18. EPIDIOLEX [Suspect]
     Active Substance: CANNABIDIOL
     Dosage: 400 MILLIGRAM, BID
     Route: 048
     Dates: start: 20201223, end: 202102
  19. ATIVAN [Concomitant]
     Active Substance: LORAZEPAM
     Indication: EPILEPSY
     Dosage: 1.25 MILLIGRAM, QD (0.5?0.25?0.25?0.25)
     Route: 065
     Dates: start: 2018
  20. RISPERIDONE. [Concomitant]
     Active Substance: RISPERIDONE
     Dosage: UNK (OFF THE DRUG)
     Route: 065
     Dates: start: 2018, end: 2019
  21. EPIDIOLEX [Suspect]
     Active Substance: CANNABIDIOL
     Dosage: 300 MILLIGRAM, BID
     Route: 048
     Dates: start: 201902

REACTIONS (17)
  - Condition aggravated [Recovered/Resolved]
  - Eye movement disorder [Unknown]
  - Nervousness [Unknown]
  - Slow speech [Unknown]
  - Postictal state [Unknown]
  - Seizure [Recovered/Resolved]
  - Seizure [Recovered/Resolved]
  - Anxiety [Unknown]
  - Generalised tonic-clonic seizure [Unknown]
  - Dysarthria [Unknown]
  - Weight increased [Unknown]
  - Aggression [Unknown]
  - Seizure [Unknown]
  - Dizziness [Unknown]
  - Sluggishness [Unknown]
  - Seizure [Not Recovered/Not Resolved]
  - Obsessive-compulsive disorder [Recovered/Resolved]

NARRATIVE: CASE EVENT DATE: 20201222
